FAERS Safety Report 13807794 (Version 2)
Quarter: 2017Q3

REPORT INFORMATION
  Report Type: Spontaneous
  Country: SI (occurrence: SI)
  Receive Date: 20170728
  Receipt Date: 20170801
  Transmission Date: 20171127
  Serious: Yes (Other)
  Sender: FDA-Public Use
  Company Number: SI-BAYER-2017-139806

PATIENT
  Age: 56 Year
  Sex: Female

DRUGS (3)
  1. STIVARGA [Suspect]
     Active Substance: REGORAFENIB
     Indication: ADENOCARCINOMA OF COLON
     Dosage: DAILY DOSE 120 MG
     Dates: start: 201702, end: 201705
  2. STIVARGA [Suspect]
     Active Substance: REGORAFENIB
     Indication: ADENOCARCINOMA OF COLON
     Dosage: DAILY DOSE 80 MG
     Dates: start: 201701, end: 201702
  3. STIVARGA [Suspect]
     Active Substance: REGORAFENIB
     Indication: ADENOCARCINOMA OF COLON
     Dosage: DAILY DOSE 120 MG
     Dates: start: 201612

REACTIONS (5)
  - Adenocarcinoma of colon [None]
  - Palmar-plantar erythrodysaesthesia syndrome [None]
  - Metastases to peritoneum [None]
  - Decreased appetite [None]
  - Metastases to liver [None]

NARRATIVE: CASE EVENT DATE: 201701
